FAERS Safety Report 6670989-9 (Version None)
Quarter: 2010Q2

REPORT INFORMATION
  Report Type: 
  Country: None (occurrence: None)
  Receive Date: 20100407
  Receipt Date: 20100324
  Transmission Date: 20101027
  Serious: Yes (Other)
  Sender: FDA-Public Use
  Company Number: PHEH2010US02843

PATIENT
  Sex: Female

DRUGS (6)
  1. RECLAST [Suspect]
     Dosage: UNK, ONCE/SINGLE USE
  2. ANTIHYPERTENSIVES [Concomitant]
     Dosage: UNK, UNK
  3. THYROID THERAPY [Concomitant]
     Dosage: UNK, UNK
  4. DIURETICS [Concomitant]
     Dosage: UNK, UNK
  5. CHOLESTEROL- AND TRIGLYCERIDE REDUCERS [Concomitant]
     Dosage: UNK, UNK
  6. CHOLESTEROL- AND TRIGLYCERIDE REDUCERS [Concomitant]
     Dosage: UNK, UNK

REACTIONS (1)
  - CALCINOSIS [None]
